FAERS Safety Report 8244959-3 (Version None)
Quarter: 2012Q1

REPORT INFORMATION
  Report Type: 
  Country: None (occurrence: None)
  Receive Date: 20120329
  Receipt Date: 20111017
  Transmission Date: 20120608
  Serious: No
  Sender: FDA-Public Use
  Company Number: US-MYLANLABS-2011S1021692

PATIENT
  Sex: Male

DRUGS (17)
  1. FENTANYL-100 [Suspect]
     Indication: BACK PAIN
     Dosage: CHANGE Q72H
     Route: 062
  2. FENTANYL-100 [Suspect]
     Dosage: CHANGE Q72H
     Route: 062
  3. LIPITOR [Concomitant]
     Indication: BLOOD CHOLESTEROL
  4. FENTANYL-100 [Suspect]
     Dosage: CHANGE Q72H
     Route: 062
  5. LORTAB [Concomitant]
     Indication: PAIN
     Dates: end: 20110501
  6. ZYRTEC [Concomitant]
  7. TIZANIDINE HCL [Concomitant]
     Indication: PAIN
  8. CYMBALTA [Concomitant]
     Indication: PAIN
  9. IBUPROFEN [Concomitant]
  10. COMBIVENT [Concomitant]
  11. CREON [Concomitant]
  12. CALCIUM CARBONATE [Concomitant]
  13. SOMA [Concomitant]
     Indication: PAIN
     Dates: end: 20110501
  14. GABAPENTIN [Concomitant]
     Indication: PAIN
  15. FOLIC ACID [Concomitant]
  16. VALTREX [Concomitant]
  17. CENTRUM [Concomitant]

REACTIONS (3)
  - DRUG EFFECT DECREASED [None]
  - BACK PAIN [None]
  - DRUG SCREEN NEGATIVE [None]
